FAERS Safety Report 5216333-5 (Version None)
Quarter: 2007Q1

REPORT INFORMATION
  Report Type: 
  Country: None (occurrence: None)
  Receive Date: 20070123
  Receipt Date: 20070112
  Transmission Date: 20070707
  Serious: Yes (Other)
  Sender: FDA-Public Use
  Company Number: US-PFIZER INC-2007004428

PATIENT
  Sex: Male
  Weight: 106.6 kg

DRUGS (3)
  1. LYRICA [Suspect]
     Indication: NEUROPATHY PERIPHERAL
  2. TOPROL-XL [Concomitant]
  3. WARFARIN SODIUM [Concomitant]

REACTIONS (3)
  - CARDIOVERSION [None]
  - EYE SWELLING [None]
  - SWELLING FACE [None]
